FAERS Safety Report 7598318-7 (Version None)
Quarter: 2011Q3

REPORT INFORMATION
  Report Type: 
  Country: None (occurrence: None)
  Receive Date: 20110708
  Receipt Date: 20110623
  Transmission Date: 20111222
  Serious: Yes (Other)
  Sender: FDA-Public Use
  Company Number: MX-GENENTECH-320864

PATIENT
  Age: 23 Year
  Sex: Female

DRUGS (1)
  1. XOLAIR [Suspect]
     Indication: ASTHMA
     Dosage: 750 MG, X1
     Dates: start: 20110602

REACTIONS (4)
  - SYNCOPE [None]
  - LOSS OF CONSCIOUSNESS [None]
  - PALLOR [None]
  - FAECAL INCONTINENCE [None]
